FAERS Safety Report 17185574 (Version 1)
Quarter: 2019Q4

REPORT INFORMATION
  Report Type: Spontaneous
  Country: DK (occurrence: DK)
  Receive Date: 20191220
  Receipt Date: 20191220
  Transmission Date: 20200122
  Serious: Yes (Other)
  Sender: FDA-Public Use
  Company Number: DK-MYLANLABS-2019M1125829

PATIENT
  Age: 76 Year
  Sex: Female

DRUGS (2)
  1. LOSARSTAD COMP [Concomitant]
     Active Substance: HYDROCHLOROTHIAZIDE\LOSARTAN POTASSIUM
     Indication: HYPERTENSION
     Dosage: STYRKE: 100 + 25 MG.
     Route: 048
     Dates: start: 20131216
  2. ATORVASTATIN MYLAN [Suspect]
     Active Substance: ATORVASTATIN
     Indication: HYPERCHOLESTEROLAEMIA
     Dosage: STYRKE: 40 MG.
     Route: 048
     Dates: start: 20190521, end: 20190805

REACTIONS (4)
  - Pruritus [Recovered/Resolved]
  - Decreased appetite [Recovered/Resolved]
  - Hepatotoxicity [Recovering/Resolving]
  - Hepatic enzyme abnormal [Recovering/Resolving]

NARRATIVE: CASE EVENT DATE: 201907
